FAERS Safety Report 17805067 (Version 2)
Quarter: 2020Q2

REPORT INFORMATION
  Report Type: Report from Study
  Country: CA (occurrence: CA)
  Receive Date: 20200519
  Receipt Date: 20200520
  Transmission Date: 20200714
  Serious: Yes (Hospitalization, Other)
  Sender: FDA-Public Use
  Company Number: NVSC2020CA134108

PATIENT
  Age: 37 Year
  Sex: Female
  Weight: 83 kg

DRUGS (3)
  1. TRAMETINIB [Suspect]
     Active Substance: TRAMETINIB
     Indication: COLON CANCER STAGE IV
     Dosage: 1 MG, QD
     Route: 048
     Dates: start: 20200312, end: 20200501
  2. DABRAFENIB [Suspect]
     Active Substance: DABRAFENIB
     Indication: COLON CANCER STAGE IV
     Dosage: 100 MG, BID
     Route: 048
     Dates: start: 20200312, end: 20200501
  3. PANITUMUMAB [Concomitant]
     Active Substance: PANITUMUMAB
     Indication: COLON CANCER STAGE IV
     Dosage: 4.5 MG, QD
     Route: 065
     Dates: start: 20200312, end: 20200501

REACTIONS (5)
  - Infection [Recovered/Resolved]
  - Malignant neoplasm progression [Unknown]
  - Pyrexia [Recovered/Resolved]
  - Colon cancer stage IV [Unknown]
  - Drug ineffective [Unknown]

NARRATIVE: CASE EVENT DATE: 202004
